FAERS Safety Report 7552229-1 (Version None)
Quarter: 2011Q2

REPORT INFORMATION
  Report Type: 
  Country: None (occurrence: None)
  Receive Date: 20110616
  Receipt Date: 20040216
  Transmission Date: 20111010
  Serious: Yes (Death)
  Sender: FDA-Public Use
  Company Number: PHHO2004MX02477

PATIENT
  Age: 61 Year
  Sex: Male

DRUGS (4)
  1. FORADIL [Suspect]
     Indication: CHRONIC OBSTRUCTIVE PULMONARY DISEASE
     Dosage: UNKNOWN
     Dates: start: 20031121
  2. PREDNISONE [Concomitant]
     Dosage: UNKNOWN
  3. THEOPHYLLINE [Concomitant]
     Dosage: UNKNOWN
  4. ALBUTEROL [Concomitant]
     Dosage: UNKNOWN

REACTIONS (2)
  - DRUG INEFFECTIVE [None]
  - DEATH [None]
